FAERS Safety Report 10433552 (Version 2)
Quarter: 2014Q4

REPORT INFORMATION
  Report Type: Spontaneous
  Country: JP (occurrence: JP)
  Receive Date: 20140905
  Receipt Date: 20141006
  Transmission Date: 20150528
  Serious: Yes (Life-Threatening, Hospitalization)
  Sender: FDA-Public Use
  Company Number: JP-ASTRAZENECA-2014SE65639

PATIENT
  Age: 9 Year
  Sex: Male

DRUGS (4)
  1. MEROPEN [Suspect]
     Active Substance: MEROPENEM
     Indication: PERITONITIS
     Route: 042
     Dates: start: 20140824, end: 20140825
  2. MEROPEN [Suspect]
     Active Substance: MEROPENEM
     Indication: PNEUMONIA
     Route: 042
     Dates: start: 20140824, end: 20140825
  3. MEROPEN [Suspect]
     Active Substance: MEROPENEM
     Indication: PERITONITIS
     Route: 033
  4. MEROPEN [Suspect]
     Active Substance: MEROPENEM
     Indication: PNEUMONIA
     Route: 033

REACTIONS (2)
  - Protein-losing gastroenteropathy [Unknown]
  - Anaphylactic reaction [Recovered/Resolved]

NARRATIVE: CASE EVENT DATE: 20140824
